FAERS Safety Report 9983148 (Version 1)
Quarter: 2014Q1

REPORT INFORMATION
  Report Type: Spontaneous
  Country: None (occurrence: FR)
  Receive Date: 20140307
  Receipt Date: 20140307
  Transmission Date: 20141002
  Serious: Yes (Death, Hospitalization)
  Sender: FDA-Public Use
  Company Number: FR-INCYTE CORPORATION-2014IN000538

PATIENT
  Age: 74 Year
  Sex: Male

DRUGS (10)
  1. JAKAVI [Suspect]
     Indication: LEUKOERYTHROBLASTIC ANAEMIA
     Dosage: 20 MG, BID
     Route: 048
     Dates: start: 201209
  2. JAKAVI [Suspect]
     Indication: SPLENOMEGALY
     Dosage: 20 MG, QD
     Route: 048
     Dates: end: 20140212
  3. JAKAVI [Suspect]
     Indication: OFF LABEL USE
  4. ALDACTONE                          /00006201/ [Concomitant]
     Dosage: UNK
     Dates: end: 20140204
  5. TRANXENE [Concomitant]
     Dosage: UNK
  6. ZYLORIC [Concomitant]
     Dosage: UNK
  7. KARDEGIC [Concomitant]
     Dosage: UNK
  8. CORDARONE [Concomitant]
     Dosage: UNK
  9. LASILIX                            /00032601/ [Concomitant]
     Dosage: UNK
  10. CARDENSIEL [Concomitant]
     Dosage: UNK

REACTIONS (3)
  - Death [Fatal]
  - Dyspnoea [Unknown]
  - Pulmonary arterial hypertension [Unknown]
